FAERS Safety Report 4472135-9 (Version None)
Quarter: 2004Q4

REPORT INFORMATION
  Report Type: 
  Country: None (occurrence: None)
  Receive Date: 20041012
  Receipt Date: 20041005
  Transmission Date: 20050328
  Serious: Yes (Hospitalization)
  Sender: FDA-Public Use
  Company Number: BR-MERCK-0410BRA00226

PATIENT
  Age: 76 Year
  Sex: Female

DRUGS (1)
  1. VIOXX [Suspect]
     Indication: PAIN IN EXTREMITY
     Route: 048
     Dates: start: 20031001, end: 20041001

REACTIONS (4)
  - CORONARY ARTERY OCCLUSION [None]
  - HEADACHE [None]
  - HYPOTENSION [None]
  - SYNCOPE [None]
